FAERS Safety Report 11281447 (Version 1)
Quarter: 2015Q3

REPORT INFORMATION
  Report Type: Spontaneous
  Country: NO (occurrence: NO)
  Receive Date: 20150717
  Receipt Date: 20150717
  Transmission Date: 20151125
  Serious: Yes (Hospitalization)
  Sender: FDA-Public Use
  Company Number: NO-ELI_LILLY_AND_COMPANY-NO201507004131

PATIENT
  Age: 67 Year
  Sex: Female

DRUGS (1)
  1. FORSTEO [Suspect]
     Active Substance: TERIPARATIDE
     Indication: OSTEOPOROSIS
     Dosage: 20 UG, QD
     Route: 065
     Dates: start: 2013, end: 20150427

REACTIONS (5)
  - Hepatic cirrhosis [Unknown]
  - Gallbladder injury [Unknown]
  - International normalised ratio increased [Unknown]
  - Hepatic failure [Recovering/Resolving]
  - Hypoalbuminaemia [Unknown]

NARRATIVE: CASE EVENT DATE: 201504
